FAERS Safety Report 9008864 (Version 2)
Quarter: 2013Q1

REPORT INFORMATION
  Report Type: Spontaneous
  Country: US (occurrence: US)
  Receive Date: 20130111
  Receipt Date: 20130131
  Transmission Date: 20140127
  Serious: Yes (Hospitalization)
  Sender: FDA-Public Use
  Company Number: US-ALLERGAN-1300131US

PATIENT
  Age: 49 Year
  Sex: Male

DRUGS (5)
  1. BOTOX? [Suspect]
     Indication: BLADDER SPASM
     Dosage: 300 UNITS, SINGLE
     Route: 030
     Dates: start: 201212, end: 201212
  2. HIPREX [Concomitant]
     Indication: BLADDER DISORDER
     Dosage: 1 G, UNK
     Route: 048
  3. DITROPAN                           /00538901/ [Concomitant]
     Indication: PRODUCT USED FOR UNKNOWN INDICATION
     Dosage: 10 MG, QAM
     Route: 048
  4. DITROPAN                           /00538901/ [Concomitant]
     Dosage: 5 MG, UNK
     Route: 048
  5. VALIUM                             /00017001/ [Concomitant]
     Indication: PRODUCT USED FOR UNKNOWN INDICATION
     Dosage: 5 MG, UNK
     Route: 048

REACTIONS (8)
  - Hyponatraemia [Not Recovered/Not Resolved]
  - Asthenia [Not Recovered/Not Resolved]
  - Dyspnoea [Not Recovered/Not Resolved]
  - Back pain [Not Recovered/Not Resolved]
  - Decreased appetite [Not Recovered/Not Resolved]
  - Nausea [Not Recovered/Not Resolved]
  - Fatigue [Unknown]
  - Off label use [Unknown]
